FAERS Safety Report 16019536 (Version 2)
Quarter: 2019Q1

REPORT INFORMATION
  Report Type: Spontaneous
  Country: US (occurrence: US)
  Receive Date: 20190228
  Receipt Date: 20190306
  Transmission Date: 20190418
  Serious: Yes (Other)
  Sender: FDA-Public Use
  Company Number: US-ASTRAZENECA-2018SF26176

PATIENT
  Age: 19737 Day
  Sex: Female

DRUGS (38)
  1. NEXIUM 24HR [Suspect]
     Active Substance: ESOMEPRAZOLE MAGNESIUM
     Route: 048
     Dates: start: 20140328, end: 20160630
  2. PREVACID 24 HR [Suspect]
     Active Substance: LANSOPRAZOLE
     Route: 065
     Dates: start: 201106, end: 201506
  3. NAPROSYN [Concomitant]
     Active Substance: NAPROXEN
  4. LIPITOR [Concomitant]
     Active Substance: ATORVASTATIN CALCIUM
  5. PREDNISOLONE. [Concomitant]
     Active Substance: PREDNISOLONE
  6. PLAVIX [Concomitant]
     Active Substance: CLOPIDOGREL BISULFATE
  7. PROMETHAZINE [Concomitant]
     Active Substance: PROMETHAZINE\PROMETHAZINE HYDROCHLORIDE
  8. NEXIUM 24HR [Suspect]
     Active Substance: ESOMEPRAZOLE MAGNESIUM
     Route: 048
     Dates: start: 201106, end: 201506
  9. PRILOSEC [Suspect]
     Active Substance: OMEPRAZOLE MAGNESIUM
     Route: 048
     Dates: start: 201106, end: 201506
  10. PRILOSEC [Suspect]
     Active Substance: OMEPRAZOLE MAGNESIUM
     Route: 048
     Dates: start: 20060101, end: 20160630
  11. PREVACID [Suspect]
     Active Substance: LANSOPRAZOLE
     Route: 065
     Dates: start: 20060101, end: 20160630
  12. CLONAZEPAM. [Concomitant]
     Active Substance: CLONAZEPAM
  13. NIFEDIPINE. [Concomitant]
     Active Substance: NIFEDIPINE
  14. ACYCLOVIR. [Concomitant]
     Active Substance: ACYCLOVIR
  15. NEXIUM [Suspect]
     Active Substance: ESOMEPRAZOLE MAGNESIUM
     Route: 048
     Dates: start: 201106, end: 201506
  16. PROTONIX [Suspect]
     Active Substance: PANTOPRAZOLE SODIUM
     Route: 065
     Dates: start: 20060101, end: 20160630
  17. ASPIRIN. [Concomitant]
     Active Substance: ASPIRIN
  18. TEKTURNA [Concomitant]
     Active Substance: ALISKIREN HEMIFUMARATE
  19. NEXIUM [Suspect]
     Active Substance: ESOMEPRAZOLE MAGNESIUM
     Route: 048
     Dates: start: 20060101, end: 20160630
  20. PROTONIX [Suspect]
     Active Substance: PANTOPRAZOLE SODIUM
     Dosage: GENERIC
     Route: 065
     Dates: start: 20110620
  21. CLONIDINE. [Concomitant]
     Active Substance: CLONIDINE
  22. ZYMAR [Concomitant]
     Active Substance: GATIFLOXACIN
  23. RENVELA [Concomitant]
     Active Substance: SEVELAMER CARBONATE
  24. PROTONIX [Suspect]
     Active Substance: PANTOPRAZOLE SODIUM
     Route: 065
     Dates: start: 201106, end: 201506
  25. NOVOLOG [Concomitant]
     Active Substance: INSULIN ASPART
  26. PROPOXYPHEN-APAP [Concomitant]
  27. TRAMADOL. [Concomitant]
     Active Substance: TRAMADOL
  28. NEURONTIN [Concomitant]
     Active Substance: GABAPENTIN
  29. ISOSORBIDE. [Concomitant]
     Active Substance: ISOSORBIDE
  30. BRIMONIDINE [Concomitant]
     Active Substance: BRIMONIDINE TARTRATE
  31. PREVACID [Suspect]
     Active Substance: LANSOPRAZOLE
     Route: 065
     Dates: start: 201106, end: 201506
  32. PREVACID 24 HR [Suspect]
     Active Substance: LANSOPRAZOLE
     Route: 065
     Dates: start: 20090815, end: 20160630
  33. TRICOR [Concomitant]
     Active Substance: FENOFIBRATE
  34. HYDRALAZINE [Concomitant]
     Active Substance: HYDRALAZINE HYDROCHLORIDE
  35. AMLODIPINE BESYLATE. [Concomitant]
     Active Substance: AMLODIPINE BESYLATE
  36. HUMULIN NOS [Concomitant]
     Active Substance: INSULIN HUMAN
  37. SODIUM BICARBONATE. [Concomitant]
     Active Substance: SODIUM BICARBONATE
  38. VITAMIN D2 [Concomitant]
     Active Substance: ERGOCALCIFEROL

REACTIONS (5)
  - End stage renal disease [Unknown]
  - Acute kidney injury [Unknown]
  - Chronic kidney disease [Unknown]
  - Renal injury [Unknown]
  - Renal failure [Unknown]

NARRATIVE: CASE EVENT DATE: 20150629
